FAERS Safety Report 9766311 (Version 2)
Quarter: 2014Q2

REPORT INFORMATION
  Report Type: Spontaneous
  Country: US (occurrence: US)
  Receive Date: 20131217
  Receipt Date: 20140513
  Transmission Date: 20141212
  Serious: Yes (Other)
  Sender: FDA-Public Use
  Company Number: US-BAYER-2013-152443

PATIENT
  Age: 18 Year
  Sex: Female

DRUGS (1)
  1. MIRENA [Suspect]
     Indication: CONTRACEPTION
     Dosage: 20 MCG/24HR, CONT
     Route: 015
     Dates: start: 20130517, end: 20131127

REACTIONS (7)
  - Genital haemorrhage [None]
  - Device issue [None]
  - Pain [None]
  - Amenorrhoea [None]
  - Mood altered [None]
  - Weight increased [None]
  - Device expulsion [None]
